FAERS Safety Report 21102546 (Version 2)
Quarter: 2022Q3

REPORT INFORMATION
  Report Type: Other
  Country: US (occurrence: None)
  Receive Date: 20220719
  Receipt Date: 20220810
  Transmission Date: 20221026
  Serious: No
  Sender: FDA-Public Use
  Company Number: US-ROCHE-3139777

PATIENT
  Sex: Female
  Weight: 90.346 kg

DRUGS (9)
  1. OCREVUS [Suspect]
     Active Substance: OCRELIZUMAB
     Indication: Relapsing-remitting multiple sclerosis
     Route: 042
     Dates: start: 201807
  2. HYDROXIZINE HCL [Concomitant]
  3. BUSPIRONE [Concomitant]
     Active Substance: BUSPIRONE HYDROCHLORIDE
  4. BLISOVI FE 1.5/30 [Concomitant]
     Active Substance: ETHINYL ESTRADIOL\NORETHINDRONE ACETATE
  5. FLUCONAZOLE [Concomitant]
     Active Substance: FLUCONAZOLE
  6. QUETIAPINE FUMARATE [Concomitant]
     Active Substance: QUETIAPINE FUMARATE
  7. PFIZER-BIONTECH COVID-19 VACCINE [Concomitant]
     Active Substance: TOZINAMERAN
  8. ARIPIPRAZOLE [Concomitant]
     Active Substance: ARIPIPRAZOLE
  9. NICOTINE [Concomitant]
     Active Substance: NICOTINE

REACTIONS (8)
  - COVID-19 [Unknown]
  - Insomnia [Unknown]
  - Ataxia [Unknown]
  - Generalised anxiety disorder [Unknown]
  - Nausea [Unknown]
  - Vomiting [Unknown]
  - Vulvovaginal candidiasis [Unknown]
  - Postural tremor [Unknown]
